FAERS Safety Report 7633032-0 (Version None)
Quarter: 2011Q3

REPORT INFORMATION
  Report Type: 
  Country: None (occurrence: None)
  Receive Date: 20110725
  Receipt Date: 20110714
  Transmission Date: 20111222
  Serious: Yes (Other)
  Sender: FDA-Public Use
  Company Number: PHHY2010AU41970

PATIENT
  Sex: Male

DRUGS (2)
  1. SANDIMMUNE [Suspect]
     Indication: RENAL TRANSPLANT
     Dosage: 25 MG, TID
     Dates: start: 20030224, end: 20100707
  2. NEORAL [Suspect]
     Indication: RENAL TRANSPLANT

REACTIONS (2)
  - DRUG HYPERSENSITIVITY [None]
  - RASH [None]
